FAERS Safety Report 9255978 (Version 5)
Quarter: 2013Q2

REPORT INFORMATION
  Report Type: Spontaneous
  Country: JP (occurrence: JP)
  Receive Date: 20130425
  Receipt Date: 20130620
  Transmission Date: 20140414
  Serious: Yes (Death, Life-Threatening)
  Sender: FDA-Public Use
  Company Number: JP-009507513-1304JPN015134

PATIENT
  Age: 80 Year
  Sex: Male
  Weight: 74 kg

DRUGS (8)
  1. CANCIDAS FOR INTRAVENOUS DRIP INFUSION 50MG [Suspect]
     Indication: FUNGAL INFECTION
     Dosage: 70 MG, QD
     Route: 041
     Dates: start: 20130418, end: 20130419
  2. OMEGACIN (BIAPENEM) [Suspect]
     Indication: PNEUMONIA
     Dosage: 0.3 G, TID
     Route: 041
     Dates: start: 20130416, end: 20130425
  3. METHYLPREDNISOLONE SODIUM SUCCINATE [Concomitant]
     Indication: INTERSTITIAL LUNG DISEASE
     Dosage: 40 MG, QD
     Route: 042
     Dates: start: 20130415, end: 20130427
  4. DIOVAN [Concomitant]
     Indication: HYPERTENSION
     Dosage: 40 MG, QD
     Route: 048
     Dates: start: 20121103, end: 20130425
  5. GASDOCK [Concomitant]
     Indication: PROPHYLAXIS
     Dosage: 20 MG, BID
     Route: 042
     Dates: start: 20130415, end: 20130425
  6. PRIDOL [Concomitant]
     Indication: INTERSTITIAL LUNG DISEASE
     Dosage: 40 MG, BID
     Route: 041
     Dates: start: 20130418, end: 20130425
  7. PRIDOL [Concomitant]
     Dosage: 125 MG, QD
     Route: 041
     Dates: start: 20130415, end: 20130417
  8. ADALAT CR [Concomitant]
     Indication: HYPERTENSION
     Dosage: 80 MG, QD
     Route: 048
     Dates: start: 20121103, end: 20130425

REACTIONS (2)
  - Interstitial lung disease [Fatal]
  - Hepatic function abnormal [Recovering/Resolving]
